FAERS Safety Report 19983060 (Version 31)
Quarter: 2025Q1

REPORT INFORMATION
  Report Type: Report from Study
  Country: US (occurrence: US)
  Receive Date: 20211021
  Receipt Date: 20250203
  Transmission Date: 20250408
  Serious: Yes (Hospitalization, Other)
  Sender: TAKEDA
  Company Number: US-TAKEDA-US202022374

PATIENT
  Age: 70 Year
  Sex: Female
  Weight: 73 kg

DRUGS (41)
  1. TEDUGLUTIDE [Suspect]
     Active Substance: TEDUGLUTIDE
     Indication: Short-bowel syndrome
     Dosage: 0.145 MILLILITER, QD
     Dates: start: 201612
  2. TEDUGLUTIDE [Suspect]
     Active Substance: TEDUGLUTIDE
     Dosage: 0.145 MILLILITER, QD
  3. TEDUGLUTIDE [Suspect]
     Active Substance: TEDUGLUTIDE
     Dosage: 0.145 MILLILITER, QD
  4. TEDUGLUTIDE [Suspect]
     Active Substance: TEDUGLUTIDE
     Dosage: 0.145 MILLILITER, QD
  5. TEDUGLUTIDE [Suspect]
     Active Substance: TEDUGLUTIDE
     Dosage: 0.145 MILLILITER, QD
  6. TEDUGLUTIDE [Suspect]
     Active Substance: TEDUGLUTIDE
     Dosage: 0.145 MILLILITER, QD
  7. TEDUGLUTIDE [Suspect]
     Active Substance: TEDUGLUTIDE
     Dosage: 0.145 MILLILITER, QD
  8. TEDUGLUTIDE [Suspect]
     Active Substance: TEDUGLUTIDE
     Dosage: 0.145 MILLILITER, QD
  9. TEDUGLUTIDE [Suspect]
     Active Substance: TEDUGLUTIDE
     Dosage: 0.145 MILLILITER, QD
  10. TEDUGLUTIDE [Suspect]
     Active Substance: TEDUGLUTIDE
     Dosage: 0.145 MILLILITER, QD
  11. TEDUGLUTIDE [Suspect]
     Active Substance: TEDUGLUTIDE
     Dosage: 0.145 MILLILITER, QD
  12. TEDUGLUTIDE [Suspect]
     Active Substance: TEDUGLUTIDE
     Dosage: 0.145 MILLILITER, QD
  13. TEDUGLUTIDE [Suspect]
     Active Substance: TEDUGLUTIDE
     Dosage: 0.145 MILLILITER, QD
  14. DUPIXENT [Suspect]
     Active Substance: DUPILUMAB
     Indication: Product used for unknown indication
  15. OXYCODONE HYDROCHLORIDE [Concomitant]
     Active Substance: OXYCODONE HYDROCHLORIDE
  16. OXYCODONE HYDROCHLORIDE [Concomitant]
     Active Substance: OXYCODONE HYDROCHLORIDE
  17. SODIUM BICARBONATE [Concomitant]
     Active Substance: SODIUM BICARBONATE
  18. Dextrose + k na [Concomitant]
  19. CARVEDILOL [Concomitant]
     Active Substance: CARVEDILOL
  20. ONDANSETRON HYDROCHLORIDE [Concomitant]
     Active Substance: ONDANSETRON HYDROCHLORIDE
  21. JARDIANCE [Concomitant]
     Active Substance: EMPAGLIFLOZIN
  22. LOPERAMIDE [Concomitant]
     Active Substance: LOPERAMIDE
  23. NIFEDIPINE [Concomitant]
     Active Substance: NIFEDIPINE
  24. NIFEDIPINE [Concomitant]
     Active Substance: NIFEDIPINE
  25. VITAMIN D3 [Concomitant]
     Active Substance: CHOLECALCIFEROL
  26. MODERNA COVID-19 VACCINE [Concomitant]
     Active Substance: ELASOMERAN
  27. OXYCODONE AND ACETAMINOPHEN [Concomitant]
     Active Substance: ACETAMINOPHEN\OXYCODONE HYDROCHLORIDE
  28. CHOLESTYRAMINE [Concomitant]
     Active Substance: CHOLESTYRAMINE
  29. VITAMIN 15 [Concomitant]
  30. FERROUS SULFATE [Concomitant]
     Active Substance: FERROUS SULFATE
  31. VITAMIN D [Concomitant]
     Active Substance: VITAMIN D NOS
  32. CALCITRIOL [Concomitant]
     Active Substance: CALCITRIOL
  33. METRONIDAZOLE [Concomitant]
     Active Substance: METRONIDAZOLE
  34. OLMESARTAN MEDOXOMIL [Concomitant]
     Active Substance: OLMESARTAN MEDOXOMIL
  35. MIRALAX [Concomitant]
     Active Substance: POLYETHYLENE GLYCOL 3350
  36. DIPHENHYDRAMINE HYDROCHLORIDE [Concomitant]
     Active Substance: DIPHENHYDRAMINE HYDROCHLORIDE
  37. MIDODRINE HYDROCHLORIDE [Concomitant]
     Active Substance: MIDODRINE HYDROCHLORIDE
  38. RETACRIT [Concomitant]
     Active Substance: EPOETIN ALFA-EPBX
  39. ELIQUIS [Concomitant]
     Active Substance: APIXABAN
  40. PHOSPHA 250 NEUTRAL [Concomitant]
     Active Substance: POTASSIUM PHOSPHATE, MONOBASIC\SODIUM PHOSPHATE, DIBASIC, ANHYDROUS\SODIUM PHOSPHATE, MONOBASIC, MON
  41. TUMS [Concomitant]
     Active Substance: CALCIUM CARBONATE

REACTIONS (35)
  - Vascular device infection [Unknown]
  - Nerve injury [Unknown]
  - Renal disorder [Unknown]
  - Catheter site infection [Unknown]
  - Fistula [Unknown]
  - Device related infection [Unknown]
  - Blood glucose increased [Recovered/Resolved]
  - Hypoaesthesia [Unknown]
  - Lactose intolerance [Unknown]
  - Blood creatinine increased [Unknown]
  - Blood creatinine abnormal [Unknown]
  - Blood pressure increased [Unknown]
  - Injection site bruising [Unknown]
  - Skin mass [Recovered/Resolved]
  - Blood pressure abnormal [Unknown]
  - Weight decreased [Recovering/Resolving]
  - Diarrhoea [Recovering/Resolving]
  - Blood pressure decreased [Unknown]
  - Hypotension [Unknown]
  - Thirst decreased [Unknown]
  - Blood pressure fluctuation [Unknown]
  - Therapeutic product effect incomplete [Unknown]
  - Poor venous access [Unknown]
  - Frequent bowel movements [Unknown]
  - Product use issue [Unknown]
  - Wrong technique in product usage process [Unknown]
  - Inappropriate schedule of product administration [Unknown]
  - Product dose omission issue [Unknown]
  - Pain [Not Recovered/Not Resolved]
  - Injection site discharge [Unknown]
  - Appetite disorder [Unknown]
  - Rash [Unknown]
  - Vomiting [Unknown]
  - Decreased appetite [Unknown]
  - Flatulence [Unknown]

NARRATIVE: CASE EVENT DATE: 20230501
